FAERS Safety Report 4658853-8 (Version None)
Quarter: 2005Q2

REPORT INFORMATION
  Report Type: 
  Country: None (occurrence: None)
  Receive Date: 20050509
  Receipt Date: 20050426
  Transmission Date: 20051028
  Serious: Yes (Hospitalization, Other)
  Sender: FDA-Public Use
  Company Number: 2005066630

PATIENT
  Age: 56 Year
  Sex: Female

DRUGS (9)
  1. CELEBREX [Suspect]
     Indication: ARTHRALGIA
     Dosage: 400 MG (200 MG, 2 IN 1 D), ORAL
     Route: 048
     Dates: start: 20001101, end: 20041201
  2. ETORICOXIB (ETORICOXIB) [Suspect]
     Indication: ARTHRALGIA
     Dosage: 90 MG (90 MG , 1 IN 1 1D), ORAL
     Route: 048
     Dates: start: 20031201, end: 20040101
  3. HYDROXYCHLOROQUINE PHOSPHATE [Concomitant]
  4. POTASSIUM CHLORIDE [Concomitant]
  5. CETIRIZINE HCL [Concomitant]
  6. NAPROXEN [Concomitant]
  7. TRAMADOL HCL [Concomitant]
  8. BENDROFLUMETHIAZIDE [Concomitant]
  9. AMLODIPINE BESYLATE [Concomitant]

REACTIONS (6)
  - ASTHENIA [None]
  - CAROTID ARTERY STENOSIS [None]
  - HYPOAESTHESIA [None]
  - SENSATION OF HEAVINESS [None]
  - TRANSIENT ISCHAEMIC ATTACK [None]
  - TREATMENT NONCOMPLIANCE [None]
